FAERS Safety Report 13650040 (Version 4)
Quarter: 2018Q2

REPORT INFORMATION
  Report Type: Spontaneous
  Country: US (occurrence: US)
  Receive Date: 20170614
  Receipt Date: 20180509
  Transmission Date: 20180711
  Serious: Yes (Other)
  Sender: FDA-Public Use
  Company Number: US-PFIZER INC-2017251990

PATIENT
  Age: 73 Year
  Sex: Female
  Weight: 99.77 kg

DRUGS (1)
  1. XELJANZ XR [Suspect]
     Active Substance: TOFACITINIB CITRATE
     Indication: RHEUMATOID ARTHRITIS
     Dosage: 11 MG, 1X/DAY
     Route: 048
     Dates: start: 20170310

REACTIONS (9)
  - Nail disorder [Unknown]
  - Pollakiuria [Unknown]
  - Condition aggravated [Unknown]
  - Pain [Unknown]
  - Rheumatoid arthritis [Unknown]
  - Feeling abnormal [Unknown]
  - Drug ineffective [Unknown]
  - Onychoclasis [Unknown]
  - Muscle spasms [Unknown]
